FAERS Safety Report 6429735-6 (Version None)
Quarter: 2009Q4

REPORT INFORMATION
  Report Type: 
  Country: None (occurrence: None)
  Receive Date: 20091103
  Receipt Date: 20091019
  Transmission Date: 20100525
  Serious: No
  Sender: FDA-Public Use
  Company Number: 02100-JPN-07-0012

PATIENT
  Age: 74 Year
  Sex: Male
  Weight: 44 kg

DRUGS (5)
  1. PLETAL [Suspect]
     Indication: CEREBRAL INFARCTION
     Dosage: 81 MG, QD ORAL
     Route: 048
     Dates: start: 20050514, end: 20070109
  2. CEROCRAL (IFENPRODIL TARTRATE) [Concomitant]
  3. CLONAZEPAM [Concomitant]
  4. NAPAGELN+#65306;LOTION (FELBINAC) [Concomitant]
  5. ASPIRIN [Suspect]

REACTIONS (2)
  - CARDIAC FAILURE [None]
  - CARDIAC HYPERTROPHY [None]
